FAERS Safety Report 9252459 (Version 6)
Quarter: 2013Q3

REPORT INFORMATION
  Report Type: Spontaneous
  Country: US (occurrence: US)
  Receive Date: 20130424
  Receipt Date: 20130827
  Transmission Date: 20140515
  Serious: Yes (Hospitalization, Other)
  Sender: FDA-Public Use
  Company Number: US-009507513-1304USA011731

PATIENT
  Age: 57 Year
  Sex: Female

DRUGS (3)
  1. PEGINTRON [Suspect]
     Indication: HEPATITIS C
     Dosage: REDIPEN, UNK
     Route: 058
     Dates: start: 20130308, end: 20130611
  2. REBETOL [Suspect]
     Indication: HEPATITIS C
     Dosage: UNK
     Route: 048
     Dates: start: 20130308, end: 20130611
  3. VICTRELIS [Suspect]
     Indication: HEPATITIS C
     Dosage: UNK
     Route: 048
     Dates: start: 20130412, end: 20130611

REACTIONS (22)
  - Chest pain [Not Recovered/Not Resolved]
  - Coronary artery occlusion [Unknown]
  - Device occlusion [Unknown]
  - Catheterisation cardiac [Unknown]
  - Anaemia [Unknown]
  - Anaemia [Recovering/Resolving]
  - Anaemia [Unknown]
  - Injection site discolouration [Unknown]
  - Pruritus [Unknown]
  - Body temperature increased [Recovering/Resolving]
  - Injection site pruritus [Unknown]
  - Pyrexia [Unknown]
  - Injection site reaction [Unknown]
  - Reproductive tract disorder [Unknown]
  - Drug dose omission [Unknown]
  - Fatigue [Unknown]
  - Insomnia [Unknown]
  - Nausea [Unknown]
  - Dysgeusia [Unknown]
  - Dysgeusia [Unknown]
  - Dry mouth [Unknown]
  - Dry skin [Unknown]
